FAERS Safety Report 4655248-8 (Version None)
Quarter: 2005Q2

REPORT INFORMATION
  Report Type: 
  Country: None (occurrence: None)
  Receive Date: 20050506
  Receipt Date: 20050310
  Transmission Date: 20051028
  Serious: Yes (Death)
  Sender: FDA-Public Use
  Company Number: 001#1#2005-00087

PATIENT

DRUGS (1)
  1. ATMADISC [Suspect]
     Dosage: 300MCG TWICE PER DAY

REACTIONS (4)
  - ABORTION SPONTANEOUS [None]
  - DRUG EXPOSURE DURING PREGNANCY [None]
  - PREGNANCY [None]
  - TRISOMY 21 [None]
